FAERS Safety Report 9279185 (Version 1)
Quarter: 2013Q2

REPORT INFORMATION
  Report Type: Spontaneous
  Country: GB (occurrence: GB)
  Receive Date: 20130508
  Receipt Date: 20130508
  Transmission Date: 20140414
  Serious: Yes (Other)
  Sender: FDA-Public Use
  Company Number: GB-UCBSA-085188

PATIENT
  Age: 83 Year
  Sex: Female
  Weight: 60 kg

DRUGS (2)
  1. CO-CODAMOL [Suspect]
     Indication: BACK PAIN
     Dates: start: 20130411, end: 20130414
  2. ADCAL [Concomitant]
     Indication: OSTEOPOROSIS

REACTIONS (5)
  - Diarrhoea [Not Recovered/Not Resolved]
  - Somnolence [Recovered/Resolved]
  - Nocturia [Recovering/Resolving]
  - Abdominal discomfort [Not Recovered/Not Resolved]
  - Micturition urgency [Not Recovered/Not Resolved]
